FAERS Safety Report 5752627-2 (Version None)
Quarter: 2008Q2

REPORT INFORMATION
  Report Type: 
  Country: None (occurrence: None)
  Receive Date: 20080529
  Receipt Date: 20080522
  Transmission Date: 20081010
  Serious: Yes (Other)
  Sender: FDA-Public Use
  Company Number: FR-WYE-G01573108

PATIENT
  Age: 40 Year
  Sex: Female

DRUGS (1)
  1. EFFEXOR [Suspect]
     Dosage: OVERDOSE AMOUNT: 30 CAPSULES (DOSAGE STRENGTH UNKNOWN)
     Route: 048
     Dates: start: 20080521, end: 20080521

REACTIONS (4)
  - DYSSTASIA [None]
  - HYPERSOMNIA [None]
  - INTENTIONAL OVERDOSE [None]
  - SUICIDE ATTEMPT [None]
